FAERS Safety Report 4627796-8 (Version None)
Quarter: 2005Q2

REPORT INFORMATION
  Report Type: 
  Country: None (occurrence: None)
  Receive Date: 20050401
  Receipt Date: 20041005
  Transmission Date: 20051028
  Serious: Yes (Death, Hospitalization)
  Sender: FDA-Public Use
  Company Number: 8970

PATIENT
  Sex: Female

DRUGS (4)
  1. IRINOTECAN [Suspect]
     Indication: COLORECTAL CANCER METASTATIC
     Dosage: 350 MG//M2 PER_CYCLE IV
     Route: 042
  2. OXALIPLATIN [Suspect]
     Indication: COLORECTAL CANCER METASTATIC
     Dosage: 65 MG/M2 PER_CYCLE IV
     Route: 042
  3. FLUOROURACIL [Suspect]
     Indication: COLORECTAL CANCER METASTATIC
     Dosage: 2300 MG/M2 WEEKLY IV
     Route: 042
  4. LEUCOVORIN CALCIUM [Suspect]
     Indication: COLORECTAL CANCER METASTATIC
     Dosage: IV
     Route: 042

REACTIONS (4)
  - DIARRHOEA [None]
  - DRUG TOXICITY [None]
  - STOMATITIS [None]
  - THERAPY NON-RESPONDER [None]
